FAERS Safety Report 4367349-2 (Version None)
Quarter: 2004Q2

REPORT INFORMATION
  Report Type: 
  Country: None (occurrence: None)
  Receive Date: 20040521
  Receipt Date: 20040511
  Transmission Date: 20050107
  Serious: Yes (Hospitalization)
  Sender: FDA-Public Use
  Company Number: 2004-01879

PATIENT
  Age: 34 Year
  Sex: Male

DRUGS (1)
  1. IMMUCYST (BCG - IT (CONNAUGHT), AVENTIS PASTEUR [Suspect]
     Indication: BLADDER CANCER
     Dosage: B.IN., BLADDER
     Route: 043
     Dates: start: 20040305, end: 20040409

REACTIONS (1)
  - REITER'S SYNDROME [None]
